FAERS Safety Report 6025005-9 (Version None)
Quarter: 2008Q4

REPORT INFORMATION
  Report Type: 
  Country: None (occurrence: None)
  Receive Date: 20081231
  Receipt Date: 20081219
  Transmission Date: 20090506
  Serious: Yes (Other)
  Sender: FDA-Public Use
  Company Number: FR-ELI_LILLY_AND_COMPANY-FR200811004518

PATIENT
  Age: 45 Year
  Sex: Female
  Weight: 64 kg

DRUGS (5)
  1. CYMBALTA [Suspect]
     Indication: DEPRESSION
     Dosage: 60 MG, DAILY (1/D)
     Route: 048
     Dates: start: 20080601, end: 20080101
  2. CYMBALTA [Suspect]
     Dosage: 30 MG, UNKNOWN
     Route: 065
     Dates: start: 20081107
  3. LYRICA [Concomitant]
     Indication: PAIN
     Dosage: 75 MG, DAILY (1/D)
     Route: 048
     Dates: start: 20070901
  4. DOLIPRANE [Concomitant]
     Indication: PAIN
     Dosage: 2 G, DAILY (1/D)
     Route: 048
     Dates: start: 20070901
  5. NUREFLEX [Concomitant]
     Indication: HEADACHE
     Dosage: 400 D/F, UNKNOWN
     Route: 048
     Dates: start: 20070901

REACTIONS (3)
  - ANOREXIA [None]
  - HEPATIC FUNCTION ABNORMAL [None]
  - NAUSEA [None]
